FAERS Safety Report 16852652 (Version 5)
Quarter: 2025Q4

REPORT INFORMATION
  Report Type: Spontaneous
  Country: EU (occurrence: EU)
  Receive Date: 20190925
  Receipt Date: 20251001
  Transmission Date: 20260117
  Serious: Yes (Other)
  Sender: MYLAN
  Company Number: EU-SA-2019SA120545

PATIENT
  Age: 52 Year
  Sex: Male
  Weight: 108 kg

DRUGS (40)
  1. MYCOPHENOLATE MOFETIL [Suspect]
     Active Substance: MYCOPHENOLATE MOFETIL
     Indication: Interstitial lung disease
     Dosage: UNK
  2. MYCOPHENOLATE MOFETIL [Suspect]
     Active Substance: MYCOPHENOLATE MOFETIL
     Dosage: UNK
     Route: 065
  3. MYCOPHENOLATE MOFETIL [Suspect]
     Active Substance: MYCOPHENOLATE MOFETIL
     Dosage: UNK
     Route: 065
  4. MYCOPHENOLATE MOFETIL [Suspect]
     Active Substance: MYCOPHENOLATE MOFETIL
     Dosage: UNK
  5. PREDNISONE [Suspect]
     Active Substance: PREDNISONE
     Indication: Interstitial lung disease
     Dosage: UNK
  6. PREDNISONE [Suspect]
     Active Substance: PREDNISONE
     Indication: Immunosuppressant drug therapy
     Dosage: UNK
     Route: 065
  7. PREDNISONE [Suspect]
     Active Substance: PREDNISONE
     Dosage: UNK
     Route: 065
  8. PREDNISONE [Suspect]
     Active Substance: PREDNISONE
     Dosage: UNK
  9. ESOMEPRAZOLE [Concomitant]
     Active Substance: ESOMEPRAZOLE
     Indication: Immunosuppressant drug therapy
     Dosage: UNK
  10. ESOMEPRAZOLE [Concomitant]
     Active Substance: ESOMEPRAZOLE
     Dosage: UNK
     Route: 065
  11. ESOMEPRAZOLE [Concomitant]
     Active Substance: ESOMEPRAZOLE
     Dosage: UNK
     Route: 065
  12. ESOMEPRAZOLE [Concomitant]
     Active Substance: ESOMEPRAZOLE
     Dosage: UNK
  13. LERCANIDIPINE [Concomitant]
     Active Substance: LERCANIDIPINE
     Indication: Immunosuppressant drug therapy
     Dosage: UNK
  14. LERCANIDIPINE [Concomitant]
     Active Substance: LERCANIDIPINE
     Dosage: UNK
     Route: 065
  15. LERCANIDIPINE [Concomitant]
     Active Substance: LERCANIDIPINE
     Dosage: UNK
     Route: 065
  16. LERCANIDIPINE [Concomitant]
     Active Substance: LERCANIDIPINE
     Dosage: UNK
  17. ALLOPURINOL [Concomitant]
     Active Substance: ALLOPURINOL
     Indication: Immunosuppressant drug therapy
     Dosage: UNK
  18. ALLOPURINOL [Concomitant]
     Active Substance: ALLOPURINOL
     Dosage: UNK
     Route: 065
  19. ALLOPURINOL [Concomitant]
     Active Substance: ALLOPURINOL
     Dosage: UNK
     Route: 065
  20. ALLOPURINOL [Concomitant]
     Active Substance: ALLOPURINOL
     Dosage: UNK
  21. AMITRIPTYLINE [Concomitant]
     Active Substance: AMITRIPTYLINE
     Indication: Immunosuppressant drug therapy
     Dosage: UNK
  22. AMITRIPTYLINE [Concomitant]
     Active Substance: AMITRIPTYLINE
     Dosage: UNK
     Route: 065
  23. AMITRIPTYLINE [Concomitant]
     Active Substance: AMITRIPTYLINE
     Dosage: UNK
     Route: 065
  24. AMITRIPTYLINE [Concomitant]
     Active Substance: AMITRIPTYLINE
     Dosage: UNK
  25. CYAMEMAZINE [Concomitant]
     Active Substance: CYAMEMAZINE
     Dosage: UNK
  26. CYAMEMAZINE [Concomitant]
     Active Substance: CYAMEMAZINE
     Dosage: UNK
     Route: 065
  27. CYAMEMAZINE [Concomitant]
     Active Substance: CYAMEMAZINE
     Dosage: UNK
     Route: 065
  28. CYAMEMAZINE [Concomitant]
     Active Substance: CYAMEMAZINE
     Dosage: UNK
  29. HALOPERIDOL [Concomitant]
     Active Substance: HALOPERIDOL
     Dosage: UNK
  30. HALOPERIDOL [Concomitant]
     Active Substance: HALOPERIDOL
     Dosage: UNK
     Route: 065
  31. HALOPERIDOL [Concomitant]
     Active Substance: HALOPERIDOL
     Dosage: UNK
     Route: 065
  32. HALOPERIDOL [Concomitant]
     Active Substance: HALOPERIDOL
     Dosage: UNK
  33. CLORAZEPATE DIPOTASSIUM [Concomitant]
     Active Substance: CLORAZEPATE DIPOTASSIUM
     Dosage: UNK
  34. CLORAZEPATE DIPOTASSIUM [Concomitant]
     Active Substance: CLORAZEPATE DIPOTASSIUM
     Dosage: UNK
     Route: 065
  35. CLORAZEPATE DIPOTASSIUM [Concomitant]
     Active Substance: CLORAZEPATE DIPOTASSIUM
     Dosage: UNK
     Route: 065
  36. CLORAZEPATE DIPOTASSIUM [Concomitant]
     Active Substance: CLORAZEPATE DIPOTASSIUM
     Dosage: UNK
  37. MIDAZOLAM [Concomitant]
     Active Substance: MIDAZOLAM
     Dosage: UNK
  38. MIDAZOLAM [Concomitant]
     Active Substance: MIDAZOLAM
     Dosage: UNK
     Route: 065
  39. MIDAZOLAM [Concomitant]
     Active Substance: MIDAZOLAM
     Dosage: UNK
     Route: 065
  40. MIDAZOLAM [Concomitant]
     Active Substance: MIDAZOLAM
     Dosage: UNK

REACTIONS (8)
  - Acute respiratory failure [Recovered/Resolved]
  - Respiratory tract infection [Recovered/Resolved]
  - Interstitial lung disease [Unknown]
  - Respiratory failure [Unknown]
  - Intentional product use issue [Unknown]
  - Infection [Unknown]
  - Intentional product misuse [Unknown]
  - Off label use [Unknown]
